FAERS Safety Report 9995055 (Version 1)
Quarter: 2014Q1

REPORT INFORMATION
  Report Type: Spontaneous
  Country: US (occurrence: None)
  Receive Date: 20140218
  Receipt Date: 20140218
  Transmission Date: 20141002
  Serious: Yes (Other)
  Sender: FDA-Public Use
  Company Number: 1000050770

PATIENT
  Age: 67 Year
  Sex: Female

DRUGS (1)
  1. VIIBRYD [Suspect]
     Dosage: 1 IN 1 D
     Dates: start: 201303, end: 20130923

REACTIONS (2)
  - Tongue disorder [None]
  - Dyskinesia [None]
